FAERS Safety Report 18891089 (Version 1)
Quarter: 2021Q1

REPORT INFORMATION
  Report Type: Other
  Country: IT (occurrence: IT)
  Receive Date: 20210215
  Receipt Date: 20210215
  Transmission Date: 20210420
  Serious: Yes (Other)
  Sender: FDA-Public Use
  Company Number: IT-ROCHE-2767006

PATIENT

DRUGS (2)
  1. BENDAMUSTINE [Suspect]
     Active Substance: BENDAMUSTINE
     Indication: DIFFUSE LARGE B-CELL LYMPHOMA
     Dosage: OVER 60 MIN
     Route: 042
  2. RITUXIMAB. [Suspect]
     Active Substance: RITUXIMAB
     Indication: DIFFUSE LARGE B-CELL LYMPHOMA
     Route: 042

REACTIONS (8)
  - Vertigo [Unknown]
  - Leukopenia [Unknown]
  - Infection [Unknown]
  - Fatigue [Unknown]
  - Anaemia [Unknown]
  - Nephropathy toxic [Unknown]
  - Neutropenia [Unknown]
  - Thrombocytopenia [Unknown]
